FAERS Safety Report 21031128 (Version 2)
Quarter: 2022Q3

REPORT INFORMATION
  Report Type: Spontaneous
  Country: US (occurrence: US)
  Receive Date: 20220701
  Receipt Date: 20220701
  Transmission Date: 20221026
  Serious: No
  Sender: FDA-Public Use
  Company Number: US-ALLERGAN-2214857US

PATIENT
  Age: 75 Year
  Sex: Male

DRUGS (4)
  1. DURYSTA [Suspect]
     Active Substance: BIMATOPROST
     Indication: Open angle glaucoma
     Dosage: UNK UNK, SINGLE
     Dates: start: 20211115, end: 20211115
  2. DURYSTA [Suspect]
     Active Substance: BIMATOPROST
     Indication: Open angle glaucoma
     Dosage: UNK, SINGLE
     Dates: start: 20211129, end: 20211129
  3. TIMOLOL [Concomitant]
     Active Substance: TIMOLOL
  4. LATANOPROST [Concomitant]
     Active Substance: LATANOPROST

REACTIONS (1)
  - Iris atrophy [Not Recovered/Not Resolved]
